FAERS Safety Report 6887794-0 (Version None)
Quarter: 2010Q3

REPORT INFORMATION
  Report Type: 
  Country: None (occurrence: None)
  Receive Date: 20100730
  Receipt Date: 20100726
  Transmission Date: 20110219
  Serious: Yes (Life-Threatening, Hospitalization)
  Sender: FDA-Public Use
  Company Number: BR-JNJFOC-20100708803

PATIENT
  Age: 89 Year
  Sex: Female

DRUGS (4)
  1. HALDOL [Suspect]
     Indication: DEMENTIA
     Dosage: 8 DROPS PER DAY
     Route: 065
  2. MEMANTINE HCL [Concomitant]
     Indication: DEMENTIA
     Route: 065
  3. EXELON [Concomitant]
     Indication: DEMENTIA
     Route: 065
  4. CLOPIXOL [Concomitant]
     Route: 065

REACTIONS (9)
  - ACUTE PULMONARY OEDEMA [None]
  - APHASIA [None]
  - CARDIAC FAILURE CONGESTIVE [None]
  - DEHYDRATION [None]
  - DEPRESSED LEVEL OF CONSCIOUSNESS [None]
  - DIABETIC COMA [None]
  - DYSKINESIA [None]
  - MUSCLE RIGIDITY [None]
  - PARKINSONISM [None]
